FAERS Safety Report 21928537 (Version 1)
Quarter: 2023Q1

REPORT INFORMATION
  Report Type: Spontaneous
  Country: US (occurrence: US)
  Receive Date: 20230130
  Receipt Date: 20230130
  Transmission Date: 20230418
  Serious: No
  Sender: FDA-Public Use
  Company Number: US-drreddys-SPO/USA/22/0158710

PATIENT
  Age: 66 Year
  Sex: Male

DRUGS (8)
  1. LENALIDOMIDE [Suspect]
     Active Substance: LENALIDOMIDE
     Indication: Plasma cell myeloma
     Route: 048
  2. METFORMIN [Concomitant]
     Active Substance: METFORMIN HYDROCHLORIDE
     Indication: Product used for unknown indication
  3. ASPIRIN TBE [Concomitant]
     Indication: Product used for unknown indication
  4. DORZOLAMIDE SOL [Concomitant]
     Indication: Product used for unknown indication
  5. FOLIC ACID [Concomitant]
     Active Substance: FOLIC ACID
     Indication: Product used for unknown indication
  6. TOBRAMYCIN-D SUS  0.3-0.1% [Concomitant]
     Indication: Product used for unknown indication
  7. ACYCLOVIR TAB [Concomitant]
     Indication: Product used for unknown indication
  8. DEXAMETHASON TAB [Concomitant]
     Indication: Product used for unknown indication

REACTIONS (1)
  - Product administration interrupted [Unknown]
